FAERS Safety Report 11055718 (Version 1)
Quarter: 2015Q2

REPORT INFORMATION
  Report Type: Spontaneous
  Country: JP (occurrence: JP)
  Receive Date: 20150422
  Receipt Date: 20150422
  Transmission Date: 20150821
  Serious: Yes (Other)
  Sender: FDA-Public Use
  Company Number: JP-PFIZER INC-2015131412

PATIENT
  Sex: Male

DRUGS (1)
  1. LYRICA [Suspect]
     Active Substance: PREGABALIN
     Route: 048

REACTIONS (5)
  - Oedema peripheral [Unknown]
  - Loss of consciousness [Unknown]
  - Fall [Unknown]
  - Musculoskeletal stiffness [Unknown]
  - Drug withdrawal syndrome [Not Recovered/Not Resolved]
